FAERS Safety Report 9073391 (Version 1)
Quarter: 2013Q1

REPORT INFORMATION
  Report Type: Report from Study
  Country: US (occurrence: US)
  Receive Date: 20130129
  Receipt Date: 20130129
  Transmission Date: 20140127
  Serious: No
  Sender: FDA-Public Use
  Company Number: US-ABBOTT-12P-163-0943098-00

PATIENT
  Age: 35 Year
  Sex: Female

DRUGS (7)
  1. HUMIRA 40 MG/0.8 ML PEN [Suspect]
     Indication: RHEUMATOID ARTHRITIS
     Dates: start: 201205
  2. LEFLUNOMIDE [Concomitant]
     Indication: RHEUMATOID ARTHRITIS
     Dosage: 10MG DAILY
     Route: 048
  3. ALLEGRA [Concomitant]
     Indication: HYPERSENSITIVITY
     Dosage: DAILY
     Route: 048
  4. DULERA [Concomitant]
     Indication: ASTHMA
  5. PRILOSEC [Concomitant]
     Indication: DYSPEPSIA
     Dosage: GENERIC 30MG DAILY
     Route: 048
  6. LUTERA [Concomitant]
     Indication: CONTRACEPTION
     Dosage: DAILY
     Route: 048
  7. VOLTRAN [Concomitant]
     Indication: RHEUMATOID ARTHRITIS
     Dosage: 75MG DAILY
     Route: 048

REACTIONS (2)
  - Injection site pain [Recovered/Resolved]
  - Injection site pain [Unknown]
